FAERS Safety Report 10276460 (Version 1)
Quarter: 2014Q3

REPORT INFORMATION
  Report Type: Spontaneous
  Country: US (occurrence: US)
  Receive Date: 20140703
  Receipt Date: 20140703
  Transmission Date: 20150326
  Serious: Yes (Hospitalization)
  Sender: FDA-Public Use
  Company Number: US-ASTRAZENECA-2014SE47943

PATIENT
  Age: 47 Year
  Sex: Female
  Weight: 69.4 kg

DRUGS (2)
  1. NEXIUM [Suspect]
     Active Substance: ESOMEPRAZOLE MAGNESIUM
     Indication: GASTROOESOPHAGEAL REFLUX DISEASE
     Route: 048
     Dates: end: 2011
  2. AMBIEN [Concomitant]
     Active Substance: ZOLPIDEM TARTRATE
     Indication: SLEEP DISORDER

REACTIONS (4)
  - Gastrooesophageal reflux disease [Unknown]
  - Pneumonia [Unknown]
  - Nasopharyngitis [Unknown]
  - Drug dose omission [Unknown]

NARRATIVE: CASE EVENT DATE: 2011
